FAERS Safety Report 8277424 (Version 3)
Quarter: 2016Q4

REPORT INFORMATION
  Report Type: Spontaneous
  Country: US (occurrence: US)
  Receive Date: 20111207
  Receipt Date: 20161208
  Transmission Date: 20170207
  Serious: No
  Sender: FDA-Public Use
  Company Number: US-PFIZER INC-2011296747

PATIENT
  Age: 66 Year
  Sex: Female

DRUGS (2)
  1. PHENOBARBITONE [Concomitant]
     Active Substance: PHENOBARBITAL
     Indication: SEIZURE
     Dosage: UNK
  2. DILANTIN [Suspect]
     Active Substance: PHENYTOIN
     Indication: SEIZURE
     Dosage: 50 MG, UNK
     Route: 048
     Dates: start: 201106

REACTIONS (2)
  - Eructation [Unknown]
  - Dysphagia [Unknown]

NARRATIVE: CASE EVENT DATE: 201106
